FAERS Safety Report 4934094-1 (Version None)
Quarter: 2006Q1

REPORT INFORMATION
  Report Type: 
  Country: None (occurrence: None)
  Receive Date: 20060303
  Receipt Date: 20060218
  Transmission Date: 20060701
  Serious: Yes (Other)
  Sender: FDA-Public Use
  Company Number: 2006025527

PATIENT
  Age: 71 Year
  Sex: Male
  Weight: 61.2356 kg

DRUGS (1)
  1. VIAGRA [Suspect]
     Indication: ILL-DEFINED DISORDER

REACTIONS (3)
  - DYSPNOEA [None]
  - EMPHYSEMA [None]
  - HYPERTENSION [None]
